FAERS Safety Report 18101175 (Version 1)
Quarter: 2020Q3

REPORT INFORMATION
  Report Type: Spontaneous
  Country: US (occurrence: US)
  Receive Date: 20200801
  Receipt Date: 20200801
  Transmission Date: 20201103
  Serious: Yes (Hospitalization, Other)
  Sender: FDA-Public Use
  Company Number: US-MSNLABS-2020MSNLIT00141

PATIENT
  Age: 65 Year
  Sex: Male

DRUGS (10)
  1. 5?FU [Suspect]
     Active Substance: FLUOROURACIL
     Indication: ADENOCARCINOMA PANCREAS
     Route: 065
     Dates: start: 201804, end: 201806
  2. OXALIPLATIN. [Suspect]
     Active Substance: OXALIPLATIN
     Indication: ADENOCARCINOMA PANCREAS
     Dosage: (85 MG/M2 OVER 2 HOURS)
     Route: 065
     Dates: start: 201804, end: 201806
  3. CAPECITABINE TABLETS 500 MG [Suspect]
     Active Substance: CAPECITABINE
     Indication: ADENOCARCINOMA PANCREAS
     Route: 065
     Dates: start: 201808, end: 20181002
  4. OXALIPLATIN. [Suspect]
     Active Substance: OXALIPLATIN
     Route: 065
     Dates: start: 201807, end: 201808
  5. LEUCOVORIN. [Suspect]
     Active Substance: LEUCOVORIN
     Dosage: 2 CYCLES
     Route: 065
     Dates: start: 201807, end: 201808
  6. IRINOTECAN [Suspect]
     Active Substance: IRINOTECAN
     Indication: ADENOCARCINOMA PANCREAS
     Dosage: 135 MG/M2 OVER 90 MINUTES (4 CYCLES)
     Route: 065
     Dates: start: 201804, end: 201806
  7. PEMBROLIZUMAB. [Interacting]
     Active Substance: PEMBROLIZUMAB
     Indication: PANCREATIC CARCINOMA METASTATIC
     Route: 065
  8. 5?FU [Suspect]
     Active Substance: FLUOROURACIL
     Route: 065
     Dates: start: 201807, end: 201808
  9. LEUCOVORIN. [Suspect]
     Active Substance: LEUCOVORIN
     Indication: ADENOCARCINOMA PANCREAS
     Dosage: 400 MG/M2 OVER 2 HOURS (4 CYCLES)
     Route: 065
     Dates: start: 201804, end: 201806
  10. IRINOTECAN [Suspect]
     Active Substance: IRINOTECAN
     Route: 065
     Dates: start: 201807, end: 201808

REACTIONS (2)
  - Neoplasm progression [Recovered/Resolved]
  - Off label use [Unknown]
